FAERS Safety Report 12346037 (Version 1)
Quarter: 2016Q2

REPORT INFORMATION
  Report Type: Spontaneous
  Country: US (occurrence: US)
  Receive Date: 20160509
  Receipt Date: 20160509
  Transmission Date: 20160815
  Serious: No
  Sender: FDA-Public Use
  Company Number: US-BAYER-2016-087930

PATIENT
  Sex: Female

DRUGS (1)
  1. MIRALAX [Suspect]
     Active Substance: POLYETHYLENE GLYCOL 3350
     Indication: GASTROINTESTINAL MOTILITY DISORDER
     Dosage: UNK, QD
     Route: 048
     Dates: start: 2016

REACTIONS (5)
  - Product use issue [None]
  - Malaise [None]
  - Drug ineffective [None]
  - Flatulence [None]
  - Vomiting [None]

NARRATIVE: CASE EVENT DATE: 2016
